FAERS Safety Report 18219127 (Version 2)
Quarter: 2020Q3

REPORT INFORMATION
  Report Type: Report from Study
  Country: None (occurrence: US)
  Receive Date: 20200901
  Receipt Date: 20200903
  Transmission Date: 20201103
  Serious: Yes (Other)
  Sender: FDA-Public Use
  Company Number: US-ABBVIE-20K-163-3544832-00

PATIENT
  Sex: Female

DRUGS (1)
  1. ORILISSA [Suspect]
     Active Substance: ELAGOLIX SODIUM
     Indication: PRODUCT USED FOR UNKNOWN INDICATION
     Route: 048
     Dates: start: 20200626

REACTIONS (7)
  - Post procedural contusion [Recovering/Resolving]
  - Suture related complication [Recovering/Resolving]
  - Incision site haemorrhage [Recovering/Resolving]
  - Amenorrhoea [Not Recovered/Not Resolved]
  - Headache [Recovering/Resolving]
  - Scar [Recovering/Resolving]
  - Nausea [Not Recovered/Not Resolved]

NARRATIVE: CASE EVENT DATE: 2020
